FAERS Safety Report 19537899 (Version 6)
Quarter: 2023Q2

REPORT INFORMATION
  Report Type: Report from Study
  Country: AR (occurrence: AR)
  Receive Date: 20210714
  Receipt Date: 20230607
  Transmission Date: 20230721
  Serious: Yes (Other)
  Sender: FDA-Public Use
  Company Number: NVSC2021AR152509

PATIENT
  Sex: Male

DRUGS (2)
  1. COSENTYX [Suspect]
     Active Substance: SECUKINUMAB
     Indication: Psoriasis
     Dosage: 300 MG, QMO
     Route: 058
     Dates: start: 20181109
  2. COSENTYX [Suspect]
     Active Substance: SECUKINUMAB
     Dosage: 300 MG, QMO
     Route: 058

REACTIONS (10)
  - Dementia Alzheimer^s type [Unknown]
  - Cerebral infarction [Unknown]
  - Cerebrovascular accident [Unknown]
  - Senile dementia [Not Recovered/Not Resolved]
  - Cognitive disorder [Unknown]
  - Pain in extremity [Unknown]
  - Nervous system disorder [Unknown]
  - Illness [Unknown]
  - Aneurysm [Unknown]
  - Memory impairment [Unknown]

NARRATIVE: CASE EVENT DATE: 20190101
